FAERS Safety Report 10223680 (Version 2)
Quarter: 2014Q2

REPORT INFORMATION
  Report Type: Spontaneous
  Country: US (occurrence: US)
  Receive Date: 20140609
  Receipt Date: 20140609
  Transmission Date: 20141212
  Serious: No
  Sender: FDA-Public Use
  Company Number: US-ASTRAZENECA-2014SE24249

PATIENT
  Age: 68 Year
  Sex: Male
  Weight: 98.4 kg

DRUGS (2)
  1. CRESTOR [Suspect]
     Indication: BLOOD CHOLESTEROL ABNORMAL
     Dosage: DAILY
     Route: 048
     Dates: start: 201403
  2. OTHER(UNSPECIFIED) [Concomitant]
     Dosage: UNKNOWN UNK

REACTIONS (2)
  - Joint swelling [Recovered/Resolved]
  - Oedema peripheral [Recovered/Resolved]
